FAERS Safety Report 11517688 (Version 1)
Quarter: 2015Q3

REPORT INFORMATION
  Report Type: Spontaneous
  Country: US (occurrence: US)
  Receive Date: 20150917
  Receipt Date: 20150917
  Transmission Date: 20151125
  Serious: No
  Sender: FDA-Public Use
  Company Number: US-BAYER-2015-415619

PATIENT
  Sex: Female

DRUGS (9)
  1. OMEPRAZOLE. [Concomitant]
     Active Substance: OMEPRAZOLE
  2. TRAMADOL. [Concomitant]
     Active Substance: TRAMADOL
  3. FUROSEMIDE. [Concomitant]
     Active Substance: FUROSEMIDE
  4. LYRICA [Concomitant]
     Active Substance: PREGABALIN
     Dosage: 50 MG, QD
     Route: 048
  5. AMLODIPINE [Concomitant]
     Active Substance: AMLODIPINE BESYLATE
  6. DIAZEPAM. [Concomitant]
     Active Substance: DIAZEPAM
  7. SPIRONOLACTONE. [Concomitant]
     Active Substance: SPIRONOLACTONE
  8. METOPROLOL [Concomitant]
     Active Substance: METOPROLOL
  9. CIPRO [Suspect]
     Active Substance: CIPROFLOXACIN HYDROCHLORIDE

REACTIONS (1)
  - Drug hypersensitivity [None]
